FAERS Safety Report 4769029-8 (Version None)
Quarter: 2005Q3

REPORT INFORMATION
  Report Type: 
  Country: None (occurrence: None)
  Receive Date: 20050913
  Receipt Date: 20050901
  Transmission Date: 20060218
  Serious: Yes (Life-Threatening, Hospitalization, Other)
  Sender: FDA-Public Use
  Company Number: HQWYE235902SEP05

PATIENT
  Age: 56 Year
  Sex: Male

DRUGS (3)
  1. PANTOZOL (PANTOPRAZOLE, TABLET, DELAYED RELEASE) [Suspect]
     Indication: GASTRIC DISORDER
     Dosage: 1 DOSAGE FORM 1X PER 1 DAY ORAL
     Route: 048
     Dates: end: 20050621
  2. INEGY (EZETIMIBE/SIMVASTATIN, ) [Suspect]
     Indication: HYPERCHOLESTEROLAEMIA
     Dosage: 1 DOSAGE FORM 1X PER 1 DAY ORAL
     Route: 048
     Dates: end: 20050620
  3. INEGY (EZETIMIBE/SIMVASTATIN, ) [Suspect]
     Indication: HYPERLIPIDAEMIA
     Dosage: 1 DOSAGE FORM 1X PER 1 DAY ORAL
     Route: 048
     Dates: end: 20050620

REACTIONS (4)
  - BLOOD CREATININE INCREASED [None]
  - CHILLS [None]
  - PYREXIA [None]
  - RASH [None]
